FAERS Safety Report 18073944 (Version 1)
Quarter: 2020Q3

REPORT INFORMATION
  Report Type: Spontaneous
  Country: IR (occurrence: IR)
  Receive Date: 20200727
  Receipt Date: 20200727
  Transmission Date: 20201103
  Serious: Yes (Life-Threatening)
  Sender: FDA-Public Use
  Company Number: IR-JNJFOC-20200723871

PATIENT
  Age: 60 Year
  Sex: Male

DRUGS (1)
  1. REMICADE [Suspect]
     Active Substance: INFLIXIMAB
     Indication: ANKYLOSING SPONDYLITIS
     Dosage: SECOND INFUSION
     Route: 042

REACTIONS (2)
  - Infusion related reaction [Recovered/Resolved]
  - Angioedema [Recovered/Resolved]
